FAERS Safety Report 6699028-0 (Version None)
Quarter: 2010Q2

REPORT INFORMATION
  Report Type: 
  Country: None (occurrence: None)
  Receive Date: 20100427
  Receipt Date: 20100420
  Transmission Date: 20101027
  Serious: Yes (Death, Other)
  Sender: FDA-Public Use
  Company Number: ES-BRISTOL-MYERS SQUIBB COMPANY-15069594

PATIENT
  Age: 5 Decade
  Sex: Male

DRUGS (5)
  1. CISPLATIN [Suspect]
     Indication: GLIOBLASTOMA MULTIFORME
     Dates: start: 20061101
  2. CARMUSTINE [Interacting]
     Indication: GLIOBLASTOMA MULTIFORME
     Dates: start: 20061101
  3. PHENYTOIN [Interacting]
     Indication: STATUS EPILEPTICUS
     Dosage: 1GM IN 30 MIN ALSO 100MG/8 HRS IV FOR 2 DAYS 100MG/8 HRS ORAL INCREASED 400MG/D
     Route: 042
  4. TEMOZOLOMIDE [Interacting]
     Indication: GLIOBLASTOMA MULTIFORME
     Dosage: SIX CONSOLIDATION CYCLES
  5. DEXAMETHASONE [Interacting]
     Dosage: INCREASED TO 4MG/6HRS

REACTIONS (4)
  - CONVULSION [None]
  - DRUG INTERACTION [None]
  - MALIGNANT NEOPLASM PROGRESSION [None]
  - OPHTHALMOPLEGIA [None]
